FAERS Safety Report 25910227 (Version 1)
Quarter: 2025Q4

REPORT INFORMATION
  Report Type: Spontaneous
  Country: US (occurrence: US)
  Receive Date: 20251012
  Receipt Date: 20251012
  Transmission Date: 20260118
  Serious: No
  Sender: JOHNSON AND JOHNSON
  Company Number: US-JNJFOC-20251002240

PATIENT

DRUGS (2)
  1. IMAAVY [Suspect]
     Active Substance: NIPOCALIMAB-AAHU
     Indication: Myasthenia gravis
     Dates: start: 20250903
  2. MOUNJARO [Suspect]
     Active Substance: TIRZEPATIDE
     Indication: Product used for unknown indication

REACTIONS (1)
  - Abdominal discomfort [Recovered/Resolved]

NARRATIVE: CASE EVENT DATE: 20250917
